FAERS Safety Report 16101576 (Version 1)
Quarter: 2019Q1

REPORT INFORMATION
  Report Type: Report from Study
  Country: PL (occurrence: PL)
  Receive Date: 20190321
  Receipt Date: 20190321
  Transmission Date: 20190418
  Serious: Yes (Death, Life-Threatening)
  Sender: FDA-Public Use
  Company Number: PL-PFIZER INC-2019119255

PATIENT
  Age: 53 Year
  Sex: Male
  Weight: 86 kg

DRUGS (7)
  1. FOLINIC ACID [Suspect]
     Active Substance: LEUCOVORIN
     Indication: COLORECTAL CANCER METASTATIC
     Dosage: 200 MG, UNK
     Route: 042
     Dates: start: 20181228, end: 20190125
  2. FLUOROURACIL. [Suspect]
     Active Substance: FLUOROURACIL
     Indication: COLORECTAL CANCER METASTATIC
     Dosage: 2000 MG, UNK
     Route: 042
     Dates: start: 20181228, end: 20190125
  3. IRINOTECAN HCL [Suspect]
     Active Substance: IRINOTECAN HYDROCHLORIDE
     Indication: COLORECTAL CANCER METASTATIC
     Dosage: 360 MG, UNK
     Route: 042
     Dates: start: 20181228, end: 20190125
  4. CETUXIMAB. [Suspect]
     Active Substance: CETUXIMAB
     Indication: COLORECTAL CANCER METASTATIC
     Dosage: 1020 MG, UNK
     Route: 042
     Dates: start: 20181227, end: 20190125
  5. CLEMASTINE [Concomitant]
     Active Substance: CLEMASTINE
     Dates: start: 20181227
  6. HYDROCORTIZON [HYDROCORTISONE] [Concomitant]
     Dates: start: 20181227
  7. PARACETAMOL [Concomitant]
     Active Substance: ACETAMINOPHEN
     Dates: start: 20181227

REACTIONS (3)
  - Fatigue [Fatal]
  - Hyperglycaemia [Fatal]
  - Diarrhoea [Fatal]

NARRATIVE: CASE EVENT DATE: 20190204
